FAERS Safety Report 5332172-9 (Version None)
Quarter: 2007Q2

REPORT INFORMATION
  Report Type: 
  Country: None (occurrence: None)
  Receive Date: 20070523
  Receipt Date: 20070511
  Transmission Date: 20071010
  Serious: Yes (Hospitalization)
  Sender: FDA-Public Use
  Company Number: HQWYE166514MAY07

PATIENT
  Sex: Female
  Weight: 65.83 kg

DRUGS (1)
  1. EFFEXOR XR [Suspect]
     Indication: DEPRESSION
     Dosage: TOOK ABOUT 30 OR 40 CAPS IN AN OVERDOSE
     Route: 048
     Dates: start: 20061007, end: 20061007

REACTIONS (8)
  - ABNORMAL BEHAVIOUR [None]
  - AGGRESSION [None]
  - CRYING [None]
  - FEAR [None]
  - INTENTIONAL OVERDOSE [None]
  - SUICIDE ATTEMPT [None]
  - TREMOR [None]
  - VOMITING [None]
